FAERS Safety Report 5842917-7 (Version None)
Quarter: 2008Q3

REPORT INFORMATION
  Report Type: 
  Country: None (occurrence: None)
  Receive Date: 20080813
  Receipt Date: 20080808
  Transmission Date: 20090109
  Serious: Yes (Disabling)
  Sender: FDA-Public Use
  Company Number: FR-WYE-G01124908

PATIENT
  Sex: Male
  Weight: 45 kg

DRUGS (3)
  1. RAPAMUNE [Suspect]
     Indication: LYMPHOPROLIFERATIVE DISORDER
     Route: 048
     Dates: start: 20080108, end: 20080101
  2. RAPAMUNE [Suspect]
     Route: 048
     Dates: start: 20080101
  3. CORTANCYL [Concomitant]
     Dosage: 8 MG TOTAL DAILY
     Route: 048
     Dates: start: 20070601, end: 20080226

REACTIONS (6)
  - CHEILITIS [None]
  - FEEDING DISORDER [None]
  - GINGIVAL BLEEDING [None]
  - GINGIVAL HYPERTROPHY [None]
  - GINGIVAL PAIN [None]
  - WEIGHT DECREASED [None]
